FAERS Safety Report 6685099-4 (Version None)
Quarter: 2010Q2

REPORT INFORMATION
  Report Type: 
  Country: None (occurrence: None)
  Receive Date: 20100416
  Receipt Date: 20100410
  Transmission Date: 20101027
  Serious: Yes (Other)
  Sender: FDA-Public Use
  Company Number: B0647800A

PATIENT
  Age: 86 Year
  Sex: Female

DRUGS (4)
  1. VENTOLIN [Suspect]
     Indication: ASTHMA
     Dosage: 1PUFF PER DAY
     Dates: start: 20100408, end: 20100411
  2. UNKNOWN DRUG [Concomitant]
     Indication: GASTRIC DISORDER
  3. ANTITUSSIVES [Concomitant]
  4. UNKNOWN DRUG [Concomitant]
     Indication: INFECTION

REACTIONS (5)
  - EMOTIONAL DISORDER [None]
  - HALLUCINATION [None]
  - HALLUCINATION, AUDITORY [None]
  - LOGORRHOEA [None]
  - TREMOR [None]
